FAERS Safety Report 9361156 (Version 3)
Quarter: 2014Q3

REPORT INFORMATION
  Report Type: Spontaneous
  Country: NL (occurrence: NL)
  Receive Date: 20130621
  Receipt Date: 20140814
  Transmission Date: 20150326
  Serious: Yes (Hospitalization, Other)
  Sender: FDA-Public Use
  Company Number: NL-ELI_LILLY_AND_COMPANY-NL201306003945

PATIENT
  Age: 60 Year
  Sex: Male

DRUGS (5)
  1. OXAZEPAM. [Concomitant]
     Active Substance: OXAZEPAM
     Dosage: UNK UNK, QD
     Route: 065
  2. OLANZAPINE. [Suspect]
     Active Substance: OLANZAPINE
     Dosage: 5 MG, QD
     Route: 065
  3. PRAMIPEXOLE [Interacting]
     Active Substance: PRAMIPEXOLE
     Dosage: UNK UNK, UNKNOWN
     Route: 065
  4. LITHIUM [Concomitant]
     Active Substance: LITHIUM CARBONATE
     Dosage: UNK, UNKNOWN
     Route: 065
  5. MIRTAZAPINE. [Concomitant]
     Active Substance: MIRTAZAPINE
     Dosage: 15 MG, QD
     Route: 065

REACTIONS (3)
  - Drug interaction [Unknown]
  - Mania [Recovered/Resolved]
  - Restless legs syndrome [Not Recovered/Not Resolved]
